FAERS Safety Report 8179278-7 (Version None)
Quarter: 2012Q1

REPORT INFORMATION
  Report Type: 
  Country: None (occurrence: None)
  Receive Date: 20120229
  Receipt Date: 20120229
  Transmission Date: 20120608
  Serious: No
  Sender: FDA-Public Use
  Company Number: None

PATIENT
  Sex: Female
  Weight: 59.8748 kg

DRUGS (1)
  1. PANTOPRAZOLE SODIUM [Suspect]
     Indication: BARRETT'S OESOPHAGUS
     Dosage: 40 MG ONCE DAILY ORAL
     Route: 048
     Dates: start: 20111101, end: 20120215

REACTIONS (2)
  - BARRETT'S OESOPHAGUS [None]
  - FEELING ABNORMAL [None]
